FAERS Safety Report 7362339-X (Version None)
Quarter: 2011Q1

REPORT INFORMATION
  Report Type: 
  Country: None (occurrence: None)
  Receive Date: 20110318
  Receipt Date: 20110308
  Transmission Date: 20110831
  Serious: Yes (Hospitalization)
  Sender: FDA-Public Use
  Company Number: AT-BAYER-2011-021110

PATIENT
  Age: 78 Year
  Sex: Female

DRUGS (7)
  1. AMLODIPIN 1A PHARMA GMBH [Concomitant]
     Dosage: 10 MG, QD
  2. DILATREND [Concomitant]
     Dosage: 25 MG, BID
  3. MARCOUMAR [Concomitant]
     Dosage: 3 MG, UNK
  4. MAXI-KALZ VIT D3 [Concomitant]
     Dosage: 8 G, UNK
  5. AVELOX [Suspect]
     Dosage: 400 MG, QD
  6. NEXIUM [Concomitant]
     Dosage: 40 MG, QD
  7. EBRANTIL RETARD [Concomitant]
     Dosage: 30 MG, BID

REACTIONS (2)
  - OEDEMA PERIPHERAL [None]
  - DRUG ERUPTION [None]
